FAERS Safety Report 4341108-9 (Version None)
Quarter: 2004Q2

REPORT INFORMATION
  Report Type: 
  Country: None (occurrence: None)
  Receive Date: 20040419
  Receipt Date: 20040310
  Transmission Date: 20050107
  Serious: Yes (Disabling)
  Sender: FDA-Public Use
  Company Number: PHEH2004US02905

PATIENT
  Age: 6 Year
  Sex: Male

DRUGS (1)
  1. RITALIN-SR [Suspect]
     Dosage: 20 MG, QD
     Route: 048
     Dates: start: 20011001, end: 20011201

REACTIONS (3)
  - MOVEMENT DISORDER [None]
  - THROAT IRRITATION [None]
  - TIC [None]
